FAERS Safety Report 10184737 (Version 1)
Quarter: 2014Q2

REPORT INFORMATION
  Report Type: Spontaneous
  Country: US (occurrence: None)
  Receive Date: 20140520
  Receipt Date: 20140520
  Transmission Date: 20141212
  Serious: Yes (Hospitalization)
  Sender: FDA-Public Use
  Company Number: None

PATIENT
  Age: 60 Year
  Sex: Female

DRUGS (10)
  1. FILGRASTIM [Suspect]
     Indication: BONE MARROW TRANSPLANT
     Route: 058
     Dates: start: 20121109, end: 20121117
  2. FILGRASTIM [Suspect]
     Indication: PRODUCT USED FOR UNKNOWN INDICATION
     Route: 058
     Dates: start: 20121109, end: 20121117
  3. ACYCLOVIR [Concomitant]
  4. CASPOFUNGIN [Concomitant]
  5. CYCLOBENZAPRINE [Concomitant]
  6. LORAZEPAM [Concomitant]
  7. PYRIDOXINE [Concomitant]
  8. SERTRALINE [Concomitant]
  9. TACROLIMUS [Concomitant]
  10. TEMAZEPAM [Concomitant]

REACTIONS (1)
  - Splenic haematoma [None]
